FAERS Safety Report 24183157 (Version 1)
Quarter: 2024Q3

REPORT INFORMATION
  Report Type: Other
  Country: CN (occurrence: CN)
  Receive Date: 20240807
  Receipt Date: 20240807
  Transmission Date: 20241016
  Serious: Yes (Life-Threatening, Hospitalization, Other)
  Sender: GUARDIAN PHARMACEUTICALS
  Company Number: CN-Guardian Drug Company-2160071

PATIENT
  Age: 22 Year
  Sex: Male
  Weight: 90 kg

DRUGS (4)
  1. CHILDRENS IBUPROFEN [Suspect]
     Active Substance: IBUPROFEN
     Indication: Pyrexia
     Route: 065
  2. CHILDRENS IBUPROFEN [Suspect]
     Active Substance: IBUPROFEN
     Indication: Pain
  3. DICLOFENAC SODIUM [Suspect]
     Active Substance: DICLOFENAC\DICLOFENAC SODIUM
     Route: 065
  4. ALCOHOL [Suspect]
     Active Substance: ALCOHOL
     Route: 065

REACTIONS (1)
  - Purpura fulminans [Recovered/Resolved]
